FAERS Safety Report 24101382 (Version 3)
Quarter: 2025Q3

REPORT INFORMATION
  Report Type: Spontaneous
  Country: US (occurrence: US)
  Receive Date: 20240717
  Receipt Date: 20250908
  Transmission Date: 20251021
  Serious: No
  Sender: CHATTEM
  Company Number: US-OPELLA-2024OHG023638

PATIENT
  Sex: Female

DRUGS (5)
  1. NASACORT ALLERGY 24HR [Suspect]
     Active Substance: TRIAMCINOLONE ACETONIDE
     Indication: Chronic obstructive pulmonary disease
     Dates: start: 20240614
  2. LOSARTAN [Concomitant]
     Active Substance: LOSARTAN
     Indication: Fluid retention
  3. EFFEXOR [Concomitant]
     Active Substance: VENLAFAXINE HYDROCHLORIDE
     Indication: Fluid retention
  4. ASPIRIN [Concomitant]
     Active Substance: ASPIRIN
     Indication: Fluid retention
     Dosage: AT NIGHT
  5. FUROSEMIDE [Concomitant]
     Active Substance: FUROSEMIDE
     Indication: Fluid retention

REACTIONS (2)
  - Dermatitis contact [Recovered/Resolved]
  - Pruritus [Recovered/Resolved]

NARRATIVE: CASE EVENT DATE: 20240703
